FAERS Safety Report 6383658-X (Version None)
Quarter: 2009Q3

REPORT INFORMATION
  Report Type: 
  Country: None (occurrence: None)
  Receive Date: 20090929
  Receipt Date: 20090929
  Transmission Date: 20100115
  Serious: Yes (Other)
  Sender: FDA-Public Use
  Company Number: None

PATIENT
  Weight: 77.1115 kg

DRUGS (1)
  1. ULTRAM [Suspect]
     Indication: PAIN
     Dosage: 200 MG DAILY PO
     Route: 048
     Dates: start: 20090915, end: 20090916

REACTIONS (2)
  - FEELING ABNORMAL [None]
  - IMPAIRED DRIVING ABILITY [None]
